FAERS Safety Report 4638448-2 (Version None)
Quarter: 2005Q2

REPORT INFORMATION
  Report Type: 
  Country: None (occurrence: None)
  Receive Date: 20050418
  Receipt Date: 20050412
  Transmission Date: 20051028
  Serious: Yes (Life-Threatening)
  Sender: FDA-Public Use
  Company Number: J081-002-001932

PATIENT
  Sex: Female

DRUGS (4)
  1. ARICEPT [Suspect]
     Indication: DEMENTIA ALZHEIMER'S TYPE
     Dosage: SEE IMAGE
     Route: 048
     Dates: start: 20050130, end: 20050202
  2. ARICEPT [Suspect]
     Indication: DEMENTIA ALZHEIMER'S TYPE
     Dosage: SEE IMAGE
     Route: 048
     Dates: start: 20050203, end: 20050206
  3. ISOSORBIDE MONONITRATE [Suspect]
     Dosage: 40 MG, 1 IN 1 D, ORAL
     Route: 048
  4. SODIUM CHLORIDE 0.9% [Concomitant]

REACTIONS (2)
  - ATHETOSIS [None]
  - DEPRESSED LEVEL OF CONSCIOUSNESS [None]
